FAERS Safety Report 7558127-1 (Version None)
Quarter: 2011Q2

REPORT INFORMATION
  Report Type: 
  Country: None (occurrence: None)
  Receive Date: 20110620
  Receipt Date: 20110606
  Transmission Date: 20111010
  Serious: Yes (Other)
  Sender: FDA-Public Use
  Company Number: CA-JNJFOC-20110510371

PATIENT
  Sex: Male
  Weight: 85 kg

DRUGS (6)
  1. REMICADE [Suspect]
     Indication: CROHN'S DISEASE
     Route: 042
     Dates: start: 20110408
  2. PREDNISONE [Concomitant]
     Dosage: DECREASING DOSES
  3. CENTRUM MULTIVITAMINS [Concomitant]
  4. VIT D [Concomitant]
  5. REMICADE [Suspect]
     Dosage: 3RD INFUSION
     Route: 042
     Dates: start: 20110519, end: 20110519
  6. CALCIUM CARBONATE [Concomitant]

REACTIONS (8)
  - DYSPHAGIA [None]
  - PRURITUS [None]
  - RHINORRHOEA [None]
  - PYREXIA [None]
  - FLUSHING [None]
  - INFUSION RELATED REACTION [None]
  - PARAESTHESIA ORAL [None]
  - NASAL CONGESTION [None]
